FAERS Safety Report 16879408 (Version 2)
Quarter: 2019Q4

REPORT INFORMATION
  Report Type: Spontaneous
  Country: US (occurrence: US)
  Receive Date: 20191003
  Receipt Date: 20191106
  Transmission Date: 20200122
  Serious: No
  Sender: FDA-Public Use
  Company Number: US-GLAXOSMITHKLINE-US2019176241

PATIENT
  Age: 60 Year
  Sex: Female

DRUGS (2)
  1. VALTREX [Suspect]
     Active Substance: VALACYCLOVIR HYDROCHLORIDE
     Indication: OPHTHALMIC HERPES ZOSTER
     Dosage: 500 MG, TID
     Route: 065
     Dates: start: 201909
  2. VALTREX [Suspect]
     Active Substance: VALACYCLOVIR HYDROCHLORIDE
     Dosage: 1000 MG, TID
     Route: 065
     Dates: start: 201909

REACTIONS (3)
  - Underdose [Unknown]
  - Off label use [Unknown]
  - Pain [Recovered/Resolved]

NARRATIVE: CASE EVENT DATE: 201909
